FAERS Safety Report 13876428 (Version 1)
Quarter: 2017Q3

REPORT INFORMATION
  Report Type: Spontaneous
  Country: RU (occurrence: RU)
  Receive Date: 20170817
  Receipt Date: 20170817
  Transmission Date: 20171127
  Serious: Yes (Hospitalization, Other)
  Sender: FDA-Public Use
  Company Number: RU-ASTRAZENECA-2017SE82193

PATIENT
  Age: 77 Year
  Sex: Female
  Weight: 56 kg

DRUGS (7)
  1. CONCOR [Concomitant]
     Active Substance: BISOPROLOL FUMARATE
  2. THROMBO ASS [Concomitant]
     Active Substance: ASPIRIN
  3. AMLODIPINE [Concomitant]
     Active Substance: AMLODIPINE BESYLATE
  4. BRILINTA [Suspect]
     Active Substance: TICAGRELOR
     Indication: STENT PLACEMENT
     Route: 048
     Dates: start: 20161212
  5. CALCIUM-D3 NYCOMED [Concomitant]
  6. BRILINTA [Suspect]
     Active Substance: TICAGRELOR
     Indication: ANGINA UNSTABLE
     Route: 048
     Dates: start: 20161212
  7. BETAHISTINE [Concomitant]
     Active Substance: BETAHISTINE

REACTIONS (7)
  - Hypertensive crisis [Unknown]
  - Dizziness [Not Recovered/Not Resolved]
  - Concussion [Unknown]
  - Intentional product use issue [Unknown]
  - Hand fracture [Recovered/Resolved]
  - Fall [Unknown]
  - Off label use [Unknown]

NARRATIVE: CASE EVENT DATE: 20170615
